FAERS Safety Report 9999481 (Version 2)
Quarter: 2014Q1

REPORT INFORMATION
  Report Type: Spontaneous
  Country: US (occurrence: US)
  Receive Date: 20140312
  Receipt Date: 20140312
  Transmission Date: 20141002
  Serious: Yes (Hospitalization, Other)
  Sender: FDA-Public Use
  Company Number: US-TEVA-391469USA

PATIENT
  Age: 10 Year
  Sex: Male

DRUGS (5)
  1. AMOXICILLIN [Suspect]
     Indication: PHARYNGITIS STREPTOCOCCAL
  2. VALPROIC ACID [Suspect]
     Indication: MYOCLONIC EPILEPSY
     Dosage: 750 MILLIGRAM DAILY; STARTED SOMETIME PRIOR TO JAN-2010
  3. TOPIRAMATE [Suspect]
     Indication: MYOCLONIC EPILEPSY
     Dosage: 200 MILLIGRAM DAILY;
     Dates: start: 201207
  4. CLOBAZAM [Suspect]
     Indication: MYOCLONIC EPILEPSY
     Dosage: 20 MILLIGRAM DAILY; STARTED APPROX 2 WKS PRIOR TO ADMISSION
     Dates: end: 20130128
  5. CLORAZEPATE DIPOTASSIUM [Concomitant]
     Dosage: 15 MILLIGRAM DAILY;
     Dates: start: 201012

REACTIONS (4)
  - Stevens-Johnson syndrome [Recovered/Resolved]
  - Lobar pneumonia [Recovered/Resolved]
  - Feeding disorder [Recovered/Resolved]
  - Diarrhoea [Recovered/Resolved]
